FAERS Safety Report 9106882 (Version 1)
Quarter: 2013Q1

REPORT INFORMATION
  Report Type: Spontaneous
  Country: US (occurrence: US)
  Receive Date: 20130221
  Receipt Date: 20130221
  Transmission Date: 20140127
  Serious: Yes (Hospitalization)
  Sender: FDA-Public Use
  Company Number: US-JNJFOC-20130207950

PATIENT
  Sex: Female
  Weight: 97.98 kg

DRUGS (5)
  1. SIMPONI [Suspect]
     Indication: PSORIATIC ARTHROPATHY
     Route: 058
     Dates: start: 20120408
  2. SIMPONI [Suspect]
     Indication: PSORIASIS
     Route: 058
     Dates: start: 20120408
  3. HUMIRA [Suspect]
     Indication: PSORIATIC ARTHROPATHY
     Route: 065
     Dates: end: 201203
  4. HUMIRA [Suspect]
     Indication: PSORIASIS
     Route: 065
     Dates: end: 201203
  5. METHOTREXATE [Concomitant]
     Route: 065
     Dates: start: 20121118

REACTIONS (6)
  - Uterine disorder [Recovered/Resolved]
  - Uterine enlargement [Recovered/Resolved]
  - Joint stiffness [Unknown]
  - Nasopharyngitis [Recovered/Resolved]
  - Pain [Unknown]
  - Drug dose omission [Unknown]
